FAERS Safety Report 19443854 (Version 1)
Quarter: 2021Q2

REPORT INFORMATION
  Report Type: Spontaneous
  Country: IN (occurrence: IN)
  Receive Date: 20210621
  Receipt Date: 20210621
  Transmission Date: 20210717
  Serious: Yes (Death, Other)
  Sender: FDA-Public Use
  Company Number: IN-PFIZER INC-2021454530

PATIENT
  Age: 68 Year
  Sex: Male

DRUGS (2)
  1. DACOPLICE [Suspect]
     Active Substance: DACOMITINIB
     Dosage: 45 MG
     Dates: start: 20210319
  2. DACOPLICE [Suspect]
     Active Substance: DACOMITINIB
     Dosage: 30 MG, 1X/DAY
     Route: 048
     Dates: start: 20210416

REACTIONS (2)
  - Folliculitis [Unknown]
  - Death [Fatal]

NARRATIVE: CASE EVENT DATE: 2021
